FAERS Safety Report 8409061-6 (Version None)
Quarter: 2012Q2

REPORT INFORMATION
  Report Type: 
  Country: None (occurrence: None)
  Receive Date: 20120604
  Receipt Date: 20120223
  Transmission Date: 20120825
  Serious: No
  Sender: FDA-Public Use
  Company Number: US-NOVEN-12US004163

PATIENT
  Sex: Female
  Weight: 56.689 kg

DRUGS (3)
  1. DAYTRANA [Suspect]
     Indication: NARCOLEPSY
     Dosage: 20 MG, UNK
     Route: 062
     Dates: start: 20120220
  2. ZOLOFT [Concomitant]
     Indication: DEPRESSION
     Route: 048
  3. ZYPREXA [Concomitant]
     Indication: INSOMNIA
     Route: 048

REACTIONS (4)
  - DRUG ADMINISTRATION ERROR [None]
  - OFF LABEL USE [None]
  - PRODUCT QUALITY ISSUE [None]
  - NO ADVERSE EVENT [None]
